FAERS Safety Report 15942963 (Version 4)
Quarter: 2019Q1

REPORT INFORMATION
  Report Type: Spontaneous
  Country: JP (occurrence: JP)
  Receive Date: 20190210
  Receipt Date: 20190228
  Transmission Date: 20190417
  Serious: Yes (Death, Other)
  Sender: FDA-Public Use
  Company Number: PHHY2019JP029307

PATIENT
  Age: 75 Year
  Sex: Male

DRUGS (5)
  1. TAXOL [Suspect]
     Active Substance: PACLITAXEL
     Indication: PNEUMOTHORAX
  2. PICIBANIL [Concomitant]
     Active Substance: OK-432
     Indication: PLEURAL ADHESION
     Route: 065
  3. INTERLEUKIN-2 [Suspect]
     Active Substance: ALDESLEUKIN
     Indication: SKIN ANGIOSARCOMA
     Route: 065
  4. TAXOL [Suspect]
     Active Substance: PACLITAXEL
     Indication: PLEURAL EFFUSION
     Dosage: 100 MG/M2,DILUTED IN 250 ML SALINE
     Route: 034
  5. VOTRIENT [Suspect]
     Active Substance: PAZOPANIB HYDROCHLORIDE
     Indication: SKIN ANGIOSARCOMA
     Route: 048

REACTIONS (7)
  - Angiosarcoma [Fatal]
  - Malignant neoplasm progression [Fatal]
  - Pleural effusion [Unknown]
  - Chest pain [Unknown]
  - Pneumothorax [Recovering/Resolving]
  - Product use in unapproved indication [Unknown]
  - Metastases to lung [Fatal]
